FAERS Safety Report 4608597-3 (Version None)
Quarter: 2005Q1

REPORT INFORMATION
  Report Type: 
  Country: None (occurrence: None)
  Receive Date: 20050315
  Receipt Date: 20050301
  Transmission Date: 20050727
  Serious: Yes (Hospitalization)
  Sender: FDA-Public Use
  Company Number: GB-JNJFOC-20050204119

PATIENT

DRUGS (6)
  1. FENTANYL [Suspect]
     Dosage: 50MCG
     Route: 062
     Dates: end: 20050115
  2. FENTANYL [Suspect]
     Indication: PAIN
     Route: 062
     Dates: end: 20050115
  3. INTRON [Suspect]
     Route: 042
  4. MORPHINE [Suspect]
     Indication: PAIN
     Route: 049
     Dates: start: 20041001
  5. PARACETEMOL [Concomitant]
     Route: 049
     Dates: start: 20041011
  6. ASPIRIN [Concomitant]
     Route: 049
     Dates: start: 20040701

REACTIONS (5)
  - CONFUSIONAL STATE [None]
  - DEHYDRATION [None]
  - FATIGUE [None]
  - OVERDOSE [None]
  - SOMNOLENCE [None]
